FAERS Safety Report 19318860 (Version 1)
Quarter: 2021Q2

REPORT INFORMATION
  Report Type: Other
  Country: FR (occurrence: FR)
  Receive Date: 20210527
  Receipt Date: 20210527
  Transmission Date: 20210717
  Serious: Yes (Hospitalization)
  Sender: FDA-Public Use
  Company Number: FR-INCYTE CORPORATION-2021IN004610

PATIENT

DRUGS (2)
  1. JAKAVI [Suspect]
     Active Substance: RUXOLITINIB
     Indication: PRIMARY MYELOFIBROSIS
     Dosage: 10 MG, QD
     Route: 048
     Dates: start: 2013
  2. HYDREA [Suspect]
     Active Substance: HYDROXYUREA
     Indication: PRIMARY MYELOFIBROSIS
     Dosage: 2 DF,QD
     Route: 048
     Dates: start: 2009, end: 2011

REACTIONS (1)
  - Squamous cell carcinoma [Not Recovered/Not Resolved]

NARRATIVE: CASE EVENT DATE: 20210325
